FAERS Safety Report 17450073 (Version 1)
Quarter: 2020Q1

REPORT INFORMATION
  Report Type: Spontaneous
  Country: IE (occurrence: IE)
  Receive Date: 20200216
  Receipt Date: 20200216
  Transmission Date: 20200409
  Serious: Yes (Other)
  Sender: FDA-Public Use
  Company Number: None

PATIENT
  Age: 49 Year
  Sex: Female
  Weight: 53 kg

DRUGS (1)
  1. MENTHOLATUM PAIN RELIEF DEEP HEATING [Suspect]
     Active Substance: MENTHOL\METHYL SALICYLATE
     Indication: NECK PAIN
     Route: 062
     Dates: start: 20200213, end: 20200213

REACTIONS (3)
  - Second degree chemical burn of skin [None]
  - Application site burn [None]
  - Third degree chemical burn of skin [None]

NARRATIVE: CASE EVENT DATE: 20200213
